FAERS Safety Report 9553138 (Version 1)
Quarter: 2013Q3

REPORT INFORMATION
  Report Type: Spontaneous
  Country: US (occurrence: None)
  Receive Date: 20130724
  Receipt Date: 20130724
  Transmission Date: 20140515
  Serious: Yes (Other)
  Sender: FDA-Public Use
  Company Number: PHEH2012US019571

PATIENT
  Age: 56 Year
  Sex: Female
  Weight: 59.4 kg

DRUGS (19)
  1. GLEEVEC [Suspect]
     Indication: CHRONIC MYELOID LEUKAEMIA
     Dates: start: 201207, end: 201208
  2. CARVEDILOL [Concomitant]
  3. PAXIL [Concomitant]
  4. CYTOMEL [Concomitant]
  5. POTASSIUM [Concomitant]
  6. MAGNESIUM [Concomitant]
  7. PROBIOTICS [Concomitant]
  8. CALCIUM [Concomitant]
  9. LOVAZA [Concomitant]
  10. KLONOPIN [Concomitant]
  11. MAG OXIDE [Concomitant]
  12. PANCREATIN [Concomitant]
  13. VITAMIN C [Concomitant]
  14. SYNTHROID [Concomitant]
  15. GINSENG [Concomitant]
  16. ADRENAL (EPINEPHERINE) [Concomitant]
  17. ASA [Concomitant]
  18. RESTORIL [Concomitant]
  19. COPPER [Concomitant]

REACTIONS (6)
  - Diarrhoea [None]
  - Flatulence [None]
  - Abdominal distension [None]
  - Fatigue [None]
  - Anaemia [None]
  - Influenza like illness [None]
